FAERS Safety Report 8346547-7 (Version None)
Quarter: 2012Q2

REPORT INFORMATION
  Report Type: 
  Country: None (occurrence: None)
  Receive Date: 20120509
  Receipt Date: 20120504
  Transmission Date: 20120825
  Serious: No
  Sender: FDA-Public Use
  Company Number: US-PFIZER INC-2012110352

PATIENT
  Sex: Female
  Weight: 110 kg

DRUGS (9)
  1. VENLAFAXINE HYDROCHLORIDE [Suspect]
     Indication: ANXIETY
  2. EFFEXOR XR [Suspect]
     Indication: ANXIETY
  3. CELEXA [Suspect]
     Indication: ANXIETY
  4. LISINOPRIL AND HYDROCHLOROTHIAZIDE [Concomitant]
     Indication: HYPERTENSION
     Dosage: 10/12.5, MG, DAILY
  5. EFFEXOR XR [Suspect]
     Indication: DEPRESSION
     Dosage: 150MG, DAILY
     Route: 048
     Dates: end: 20120401
  6. TRAZODONE HCL [Suspect]
     Indication: SLEEP DISORDER
     Dosage: 100 MG, DAILY
  7. TRAZODONE HCL [Suspect]
     Indication: DEPRESSION
  8. VENLAFAXINE HYDROCHLORIDE [Suspect]
     Indication: DEPRESSION
     Dosage: 150 MG, DAILY
     Dates: start: 20120401, end: 20120415
  9. CELEXA [Suspect]
     Indication: DEPRESSION
     Dosage: 10 MG, DAILY
     Dates: start: 20120401, end: 20120504

REACTIONS (7)
  - HEADACHE [None]
  - FEELING HOT [None]
  - ANGER [None]
  - AGITATION [None]
  - ANXIETY [None]
  - MUSCLE TWITCHING [None]
  - FEELING JITTERY [None]
